FAERS Safety Report 5211573-3 (Version None)
Quarter: 2007Q1

REPORT INFORMATION
  Report Type: 
  Country: None (occurrence: None)
  Receive Date: 20070116
  Receipt Date: 20070116
  Transmission Date: 20070707
  Serious: Yes (Other)
  Sender: FDA-Public Use
  Company Number: None

PATIENT
  Age: 74 Year
  Sex: Female
  Weight: 33 kg

DRUGS (2)
  1. CELEXA [Suspect]
     Indication: DEPRESSION
     Dosage: 20 MG DAILY PO [SEVERAL MONTHS]
     Route: 048
  2. ZYVOX [Suspect]
     Indication: DRUG USE FOR UNKNOWN INDICATION
     Dosage: 600 MG BID PO
     Route: 048
     Dates: start: 20061205

REACTIONS (3)
  - DYSTONIA [None]
  - PAIN [None]
  - SEPSIS [None]
